FAERS Safety Report 7788790-1 (Version None)
Quarter: 2011Q3

REPORT INFORMATION
  Report Type: 
  Country: None (occurrence: None)
  Receive Date: 20110930
  Receipt Date: 20110920
  Transmission Date: 20111222
  Serious: Yes (Other)
  Sender: FDA-Public Use
  Company Number: BR-SANOFI-AVENTIS-2011SA044374

PATIENT
  Age: 70 Year
  Sex: Male
  Weight: 69 kg

DRUGS (9)
  1. DRONEDARONE HCL [Suspect]
     Indication: ATRIAL FIBRILLATION
     Route: 048
     Dates: start: 20110615
  2. FUROSEMIDE [Concomitant]
     Route: 065
  3. VILDAGLIPTIN [Concomitant]
  4. METFORMIN HCL [Concomitant]
  5. WARFARIN SODIUM [Concomitant]
     Route: 065
  6. OMEPRAZOLE [Concomitant]
  7. GLYBURIDE [Concomitant]
     Route: 065
  8. BISOPROLOL [Concomitant]
     Route: 065
  9. SIMVASTATIN [Concomitant]
     Route: 065

REACTIONS (2)
  - BLOOD CREATININE INCREASED [None]
  - ATRIAL FIBRILLATION [None]
